FAERS Safety Report 7473009-1 (Version None)
Quarter: 2011Q2

REPORT INFORMATION
  Report Type: 
  Country: None (occurrence: None)
  Receive Date: 20110511
  Receipt Date: 20110504
  Transmission Date: 20111010
  Serious: Yes (Hospitalization, Other)
  Sender: FDA-Public Use
  Company Number: US-ROCHE-655714

PATIENT
  Sex: Female
  Weight: 63.5 kg

DRUGS (3)
  1. ACCUTANE [Suspect]
     Indication: ACNE
     Route: 048
     Dates: start: 20020821
  2. ACCUTANE [Suspect]
     Route: 048
     Dates: start: 20021023
  3. ACCUTANE [Suspect]
     Route: 048
     Dates: start: 20021127, end: 20030121

REACTIONS (6)
  - LIP DRY [None]
  - INFLAMMATORY BOWEL DISEASE [None]
  - COLITIS ULCERATIVE [None]
  - DEPRESSION [None]
  - INTESTINAL HAEMORRHAGE [None]
  - DRY SKIN [None]
